FAERS Safety Report 15760342 (Version 2)
Quarter: 2019Q1

REPORT INFORMATION
  Report Type: Spontaneous
  Country: US (occurrence: US)
  Receive Date: 20181226
  Receipt Date: 20190201
  Transmission Date: 20190417
  Serious: Yes (Other)
  Sender: FDA-Public Use
  Company Number: US-UNITED THERAPEUTICS-UNT-2018-020422

PATIENT
  Age: 69 Year
  Sex: Male
  Weight: 71.2 kg

DRUGS (6)
  1. TYVASO [Suspect]
     Active Substance: TREPROSTINIL
     Dosage: UNK
  2. OPSUMIT [Concomitant]
     Active Substance: MACITENTAN
     Indication: PRODUCT USED FOR UNKNOWN INDICATION
     Route: 065
  3. TYVASO [Suspect]
     Active Substance: TREPROSTINIL
     Indication: PULMONARY ARTERIAL HYPERTENSION
     Dosage: 18-54 MICROGRAMS, QID
     Dates: start: 20180315
  4. TYVASO [Suspect]
     Active Substance: TREPROSTINIL
     Dosage: 72 ?G, TID
  5. OFEV [Concomitant]
     Active Substance: NINTEDANIB
     Indication: PRODUCT USED FOR UNKNOWN INDICATION
     Route: 065
  6. TYVASO [Suspect]
     Active Substance: TREPROSTINIL
     Dosage: 60-120 MICROGRAMS, QID

REACTIONS (15)
  - Eye contusion [Unknown]
  - Oxygen saturation decreased [Unknown]
  - Product dose omission [Unknown]
  - Nasal injury [Unknown]
  - Oedema peripheral [Unknown]
  - Tremor [Recovered/Resolved]
  - Off label use [Unknown]
  - Joint injury [Unknown]
  - Hypoaesthesia oral [Unknown]
  - Bronchitis [Unknown]
  - Buttock injury [Unknown]
  - Syncope [Unknown]
  - Head injury [Unknown]
  - Fall [Unknown]
  - Diplopia [Unknown]

NARRATIVE: CASE EVENT DATE: 2018
